FAERS Safety Report 15794292 (Version 1)
Quarter: 2019Q1

REPORT INFORMATION
  Report Type: Spontaneous
  Country: US (occurrence: US)
  Receive Date: 20190107
  Receipt Date: 20190107
  Transmission Date: 20190417
  Serious: Yes (Hospitalization)
  Sender: FDA-Public Use
  Company Number: US-JNJFOC-20190103820

PATIENT
  Age: 72 Year
  Sex: Male
  Weight: 90.72 kg

DRUGS (3)
  1. INVOKANA [Suspect]
     Active Substance: CANAGLIFLOZIN
     Indication: TYPE 2 DIABETES MELLITUS
     Route: 048
     Dates: end: 20141020
  2. INVOKANA [Suspect]
     Active Substance: CANAGLIFLOZIN
     Indication: TYPE 2 DIABETES MELLITUS
     Route: 048
     Dates: start: 20141021
  3. INVOKANA [Suspect]
     Active Substance: CANAGLIFLOZIN
     Indication: TYPE 2 DIABETES MELLITUS
     Route: 048
     Dates: start: 20150323, end: 20170901

REACTIONS (5)
  - Gangrene [Unknown]
  - Diabetic ulcer [Unknown]
  - Osteomyelitis [Unknown]
  - Impaired healing [Unknown]
  - Toe amputation [Unknown]

NARRATIVE: CASE EVENT DATE: 20170223
